FAERS Safety Report 22346202 (Version 2)
Quarter: 2023Q2

REPORT INFORMATION
  Report Type: Spontaneous
  Country: US (occurrence: US)
  Receive Date: 20230519
  Receipt Date: 20230619
  Transmission Date: 20230722
  Serious: No
  Sender: FDA-Public Use
  Company Number: US-IMMUNOCORE, LTD.-2023-IMC-001582

PATIENT
  Age: 67 Year
  Sex: Female

DRUGS (3)
  1. KIMMTRAK [Suspect]
     Active Substance: TEBENTAFUSP-TEBN
     Indication: Uveal melanoma
     Dosage: 20 MICROGRAM, SINGLE, C1D1
     Route: 042
     Dates: start: 20230417, end: 20230417
  2. KIMMTRAK [Suspect]
     Active Substance: TEBENTAFUSP-TEBN
     Dosage: 30 MICROGRAM, SINGLE,  DOSE 2/C1D8
     Dates: start: 20230425, end: 20230425
  3. KIMMTRAK [Suspect]
     Active Substance: TEBENTAFUSP-TEBN
     Dosage: 30 MICROGRAM, C1D15
     Route: 042
     Dates: start: 20230503, end: 20230503

REACTIONS (3)
  - Cytokine release syndrome [Recovered/Resolved]
  - Hepatitis [Recovered/Resolved]
  - Hypotension [Recovered/Resolved]

NARRATIVE: CASE EVENT DATE: 20230503
